FAERS Safety Report 20012351 (Version 1)
Quarter: 2021Q4

REPORT INFORMATION
  Report Type: Spontaneous
  Country: CZ (occurrence: CZ)
  Receive Date: 20211029
  Receipt Date: 20211029
  Transmission Date: 20220303
  Serious: Yes (Hospitalization)
  Sender: FDA-Public Use
  Company Number: CZ-002147023-NVSC2021CZ164179

PATIENT
  Age: 19 Year
  Sex: Female
  Weight: 42 kg

DRUGS (2)
  1. OLANZAPINE [Suspect]
     Active Substance: OLANZAPINE
     Indication: Psychotherapy
     Dosage: 10 MG, QD (SINGLE EVENING DOSE)
     Route: 065
  2. OLANZAPINE [Suspect]
     Active Substance: OLANZAPINE
     Indication: Psychotic disorder
     Dosage: UNK (DOSE INCARESED)
     Route: 065

REACTIONS (4)
  - Concomitant disease aggravated [Unknown]
  - Obsessive-compulsive disorder [Recovered/Resolved]
  - Infection [Unknown]
  - Drug ineffective [Unknown]
